FAERS Safety Report 21281157 (Version 1)
Quarter: 2022Q3

REPORT INFORMATION
  Report Type: Spontaneous
  Country: US (occurrence: US)
  Receive Date: 20220901
  Receipt Date: 20220901
  Transmission Date: 20221027
  Serious: Yes (Death, Other)
  Sender: FDA-Public Use
  Company Number: US-PFIZER INC-202201091411

PATIENT
  Age: 52 Year
  Sex: Male

DRUGS (1)
  1. SODIUM BICARBONATE [Suspect]
     Active Substance: SODIUM BICARBONATE
     Dosage: UNK

REACTIONS (4)
  - Death [Fatal]
  - Seizure [Unknown]
  - Metabolic acidosis [Unknown]
  - Hypernatraemia [Unknown]
